FAERS Safety Report 8988176 (Version 1)
Quarter: 2012Q4

REPORT INFORMATION
  Report Type: Report from Study
  Country: IL (occurrence: IL)
  Receive Date: 20121227
  Receipt Date: 20121227
  Transmission Date: 20130627
  Serious: Yes (Hospitalization)
  Sender: FDA-Public Use
  Company Number: IL-ROCHE-1174306

PATIENT
  Age: 81 Year
  Sex: Male

DRUGS (10)
  1. RANIBIZUMAB [Suspect]
     Indication: RETINAL VEIN OCCLUSION
     Route: 050
     Dates: start: 20120118, end: 20120118
  2. RANIBIZUMAB [Suspect]
     Route: 050
     Dates: start: 20120221, end: 20120221
  3. RANIBIZUMAB [Suspect]
     Route: 050
     Dates: start: 20120321, end: 20120321
  4. RANIBIZUMAB [Suspect]
     Route: 050
     Dates: start: 20120417, end: 20120417
  5. RANIBIZUMAB [Suspect]
     Route: 050
     Dates: start: 20120513, end: 20120513
  6. RANIBIZUMAB [Suspect]
     Route: 050
     Dates: start: 20120610, end: 20120610
  7. RANIBIZUMAB [Suspect]
     Route: 050
     Dates: start: 20120805, end: 20120805
  8. RANIBIZUMAB [Suspect]
     Route: 050
     Dates: start: 20121002, end: 20121002
  9. ACETYLSALICYLIC ACID [Concomitant]
     Indication: CARDIOVASCULAR DISORDER
  10. AMLODIPINE MALEATE [Concomitant]
     Indication: ANGINA PECTORIS

REACTIONS (1)
  - Myocardial ischaemia [Recovered/Resolved]
